FAERS Safety Report 18884445 (Version 1)
Quarter: 2021Q1

REPORT INFORMATION
  Report Type: Spontaneous
  Country: US (occurrence: US)
  Receive Date: 20210212
  Receipt Date: 20210212
  Transmission Date: 20210420
  Serious: No
  Sender: FDA-Public Use
  Company Number: US-TEVA-2021-US-1878774

PATIENT
  Age: 64 Year
  Sex: Male

DRUGS (4)
  1. PROAIR HFA [Suspect]
     Active Substance: ALBUTEROL SULFATE
  2. PROAIR HFA [Suspect]
     Active Substance: ALBUTEROL SULFATE
  3. PROAIR HFA [Suspect]
     Active Substance: ALBUTEROL SULFATE
     Route: 065
  4. PROAIR HFA [Suspect]
     Active Substance: ALBUTEROL SULFATE

REACTIONS (3)
  - Dyspnoea [Unknown]
  - Anxiety [Unknown]
  - Wheezing [Unknown]
